FAERS Safety Report 7955356-X (Version None)
Quarter: 2011Q4

REPORT INFORMATION
  Report Type: 
  Country: None (occurrence: None)
  Receive Date: 20111202
  Receipt Date: 20111121
  Transmission Date: 20120403
  Serious: Yes (Hospitalization)
  Sender: FDA-Public Use
  Company Number: IN-MYLANLABS-2011S1024305

PATIENT
  Age: 61 Year
  Sex: Male

DRUGS (8)
  1. ASPIRIN [Suspect]
     Route: 065
  2. CEFOTAXIME [Concomitant]
     Route: 065
  3. AMLODIPINE [Concomitant]
     Route: 065
  4. FUROSEMIDE [Suspect]
     Route: 065
  5. METOLAZONE [Suspect]
     Route: 065
  6. ATENOLOL [Concomitant]
     Route: 065
  7. TORSEMIDE [Suspect]
     Route: 065
  8. AMILORIDE HYDROCHLORIDE [Concomitant]
     Route: 065

REACTIONS (2)
  - RENAL IMPAIRMENT [None]
  - AZOTAEMIA [None]
